FAERS Safety Report 8884563 (Version 3)
Quarter: 2013Q1

REPORT INFORMATION
  Report Type: Report from Study
  Country: FR (occurrence: FR)
  Receive Date: 20121102
  Receipt Date: 20130201
  Transmission Date: 20140127
  Serious: Yes (Hospitalization)
  Sender: FDA-Public Use
  Company Number: FR-GENZYME-CLOF-1002366

PATIENT
  Age: 11 Year
  Sex: Female
  Weight: 35 kg

DRUGS (29)
  1. CLOFARABINE [Suspect]
     Indication: ACUTE LYMPHOCYTIC LEUKAEMIA
     Dosage: 46 MG, QD; D1-D5, CYCLE 1
     Dates: start: 20120609, end: 20120613
  2. CLOFARABINE [Suspect]
     Dosage: 46 MG, QD; D1-D5, CYCLE 2
     Dates: start: 20120806, end: 20120810
  3. CLOFARABINE [Suspect]
     Dosage: 46 MG, QD; D1-D5, CYCLE 3
     Dates: start: 20120907, end: 20120911
  4. ETOPOSIDE [Suspect]
     Indication: B-CELL TYPE ACUTE LEUKAEMIA
     Dosage: 170 MG, QD; CYCLE 1
     Route: 065
     Dates: start: 20120609, end: 20120613
  5. ETOPOSIDE [Suspect]
     Dosage: 170 MG, QD; CYCLE 2
     Route: 065
     Dates: start: 20120806, end: 20120808
  6. ETOPOSIDE [Suspect]
     Dosage: 170 MG, QD; CYCLE 3
     Route: 065
     Dates: start: 20120907, end: 20120909
  7. CYCLOPHOSPHAMIDE [Suspect]
     Indication: B-CELL TYPE ACUTE LEUKAEMIA
     Dosage: 460 MG, QD; CYCLE 1
     Route: 065
     Dates: start: 20120609, end: 20120613
  8. CYCLOPHOSPHAMIDE [Suspect]
     Dosage: 460 MG, QD; CYCLE 2
     Route: 065
     Dates: start: 20120806, end: 20120807
  9. CYCLOPHOSPHAMIDE [Suspect]
     Dosage: 460 MG, QD; CYCLE 2
     Route: 065
     Dates: start: 20120808, end: 20120808
  10. CYCLOPHOSPHAMIDE [Suspect]
     Dosage: 460 MG, QD; CYCLE 3
     Route: 065
     Dates: start: 20120907, end: 20120909
  11. METHOTREXATE [Suspect]
     Indication: B-CELL TYPE ACUTE LEUKAEMIA
     Dosage: 15 MG, QD
     Route: 037
     Dates: start: 20120609, end: 20120609
  12. ARACYTINE [Suspect]
     Indication: B-CELL TYPE ACUTE LEUKAEMIA
     Dosage: 30 MG, ONCE
     Route: 037
     Dates: start: 20120725, end: 20120725
  13. ARACYTINE [Suspect]
     Dosage: 30 MG, ONCE
     Route: 065
     Dates: start: 20120905, end: 20120905
  14. HYDROCORTISONE [Suspect]
     Indication: B-CELL TYPE ACUTE LEUKAEMIA
     Dosage: 15 MG, QD
     Route: 037
     Dates: start: 20120725, end: 20120725
  15. HYDROCORTISONE [Suspect]
     Dosage: 15 MG, QD
     Route: 065
     Dates: start: 20120905, end: 20120905
  16. HYDROCORTISONE [Suspect]
     Dosage: 15 MG, QD
     Route: 065
     Dates: start: 20120609, end: 20120609
  17. SPORANOX [Concomitant]
     Indication: PRODUCT USED FOR UNKNOWN INDICATION
     Dosage: 200 MG, QD
     Dates: start: 20120919, end: 20120922
  18. MAGNE-B6 [Concomitant]
     Indication: PRODUCT USED FOR UNKNOWN INDICATION
     Dosage: 4 G, QD
     Route: 065
     Dates: start: 20120921, end: 20120925
  19. LASIX [Concomitant]
     Indication: PRODUCT USED FOR UNKNOWN INDICATION
     Dosage: 40 MG, UNK
     Route: 065
     Dates: start: 20121008, end: 20121010
  20. ZOPHREN [Concomitant]
     Indication: PRODUCT USED FOR UNKNOWN INDICATION
     Dosage: 16 MG, QD
     Dates: start: 20120609, end: 20120705
  21. ARZOMIDOL [Concomitant]
     Indication: PRODUCT USED FOR UNKNOWN INDICATION
     Dosage: 10 MG, QD
     Route: 065
     Dates: start: 20120616, end: 20120617
  22. LARGACTIL [Concomitant]
     Indication: PRODUCT USED FOR UNKNOWN INDICATION
     Dosage: UNK
     Route: 042
     Dates: start: 20120616, end: 20120619
  23. MOFETIL [Concomitant]
     Indication: PRODUCT USED FOR UNKNOWN INDICATION
     Dosage: 20 MG, QD
     Dates: start: 20120609, end: 20120704
  24. LORAFEN [Concomitant]
     Indication: PRODUCT USED FOR UNKNOWN INDICATION
     Dosage: 80 MG, QD
     Dates: start: 20120610, end: 20120617
  25. AMIKLIN [Concomitant]
     Indication: PRODUCT USED FOR UNKNOWN INDICATION
     Dosage: 260 MG, BID
     Dates: start: 20100728, end: 20120729
  26. TIORFAN [Concomitant]
     Indication: PRODUCT USED FOR UNKNOWN INDICATION
     Dosage: 200 MG, QD
     Route: 065
     Dates: start: 20020922, end: 20121001
  27. LASILIX [Concomitant]
     Indication: PRODUCT USED FOR UNKNOWN INDICATION
     Dosage: 20 MG, QD
     Route: 065
     Dates: start: 20121010, end: 20121016
  28. SPASFON [Concomitant]
     Indication: PRODUCT USED FOR UNKNOWN INDICATION
     Dosage: 80 MG, QD
     Route: 065
  29. SOL MEDROL [Concomitant]
     Indication: PRODUCT USED FOR UNKNOWN INDICATION
     Dosage: 10 MG, QD
     Route: 065
     Dates: start: 20120616, end: 20120617

REACTIONS (11)
  - Lung disorder [Recovered/Resolved]
  - Sodium retention [Recovered/Resolved]
  - Pleural effusion [Recovered/Resolved]
  - Escherichia sepsis [Recovered/Resolved]
  - Pyelonephritis [Recovered/Resolved]
  - Renal failure [Not Recovered/Not Resolved]
  - Pericardial effusion [Recovered/Resolved]
  - Pancytopenia [Not Recovered/Not Resolved]
  - Febrile neutropenia [Recovered/Resolved]
  - Febrile neutropenia [Recovered/Resolved]
  - Thrombocytopenia [Not Recovered/Not Resolved]
